FAERS Safety Report 11387266 (Version 1)
Quarter: 2015Q3

REPORT INFORMATION
  Report Type: Spontaneous
  Country: US (occurrence: US)
  Receive Date: 20150817
  Receipt Date: 20150817
  Transmission Date: 20151125
  Serious: No
  Sender: FDA-Public Use
  Company Number: US-009507513-1508USA004848

PATIENT
  Sex: Male

DRUGS (2)
  1. RAGWITEK [Suspect]
     Active Substance: AMBROSIA ARTEMISIIFOLIA POLLEN
     Indication: HYPERSENSITIVITY
     Dosage: 12 AMB-1A UNITS/ONCE PER DAY
     Route: 048
     Dates: end: 20150807
  2. RAGWITEK [Suspect]
     Active Substance: AMBROSIA ARTEMISIIFOLIA POLLEN
     Dosage: 12 AMB-1A UNITS/ONCE PER DAY
     Route: 048
     Dates: start: 20150810

REACTIONS (2)
  - Generalised erythema [Recovered/Resolved]
  - Flushing [Unknown]

NARRATIVE: CASE EVENT DATE: 20150807
